FAERS Safety Report 16128816 (Version 2)
Quarter: 2019Q2

REPORT INFORMATION
  Report Type: Report from Study
  Country: NL (occurrence: GB)
  Receive Date: 20190328
  Receipt Date: 20190409
  Transmission Date: 20190711
  Serious: Yes (Other)
  Sender: FDA-Public Use
  Company Number: GB-TEVA-2019-GB-1030803

PATIENT
  Sex: Female

DRUGS (2)
  1. CARBOPLATIN. [Suspect]
     Active Substance: CARBOPLATIN
     Indication: GESTATIONAL TROPHOBLASTIC TUMOUR
     Dosage: INTERVAL BETWEEN HIGH-DOSE CHEMOTHERAPY COURSES WAS 38 DAYS
     Route: 065
  2. ETOPOSIDE. [Suspect]
     Active Substance: ETOPOSIDE
     Indication: GESTATIONAL TROPHOBLASTIC TUMOUR
     Dosage: INTERVAL BETWEEN HIGH-DOSE CHEMOTHERAPY COURSES WAS 38 DAYS
     Route: 065

REACTIONS (1)
  - Haematotoxicity [Unknown]
